FAERS Safety Report 4629179-3 (Version None)
Quarter: 2005Q2

REPORT INFORMATION
  Report Type: 
  Country: None (occurrence: None)
  Receive Date: 20050404
  Receipt Date: 20050404
  Transmission Date: 20051028
  Serious: Yes (Life-Threatening, Hospitalization, Disabling)
  Sender: FDA-Public Use
  Company Number: None

PATIENT
  Age: 35 Year
  Sex: Female
  Weight: 47.6277 kg

DRUGS (1)
  1. AZULFIDINE EN-TABS [Suspect]
     Indication: COLITIS ULCERATIVE
     Dosage: 2 TABLETS 3 TIMES A DAY
     Dates: start: 19550101, end: 19930101

REACTIONS (3)
  - DIABETES MELLITUS [None]
  - METASTASES TO PANCREAS [None]
  - RENAL CELL CARCINOMA STAGE UNSPECIFIED [None]
